FAERS Safety Report 7203557-0 (Version None)
Quarter: 2010Q4

REPORT INFORMATION
  Report Type: 
  Country: None (occurrence: None)
  Receive Date: 20101230
  Receipt Date: 20101223
  Transmission Date: 20110411
  Serious: Yes (Life-Threatening)
  Sender: FDA-Public Use
  Company Number: FR-KINGPHARMUSA00001-K201001547

PATIENT
  Age: 103 Year
  Sex: Female

DRUGS (4)
  1. ALTACE [Suspect]
     Indication: HYPERTENSION
     Dosage: 1 DF, SINGLE
     Route: 048
     Dates: start: 20101018, end: 20101018
  2. TAMOXIFEN CITRATE [Concomitant]
     Dosage: UNK
  3. FOLINA [Concomitant]
     Dosage: UNK
  4. DOBETIN [Concomitant]
     Dosage: UNK

REACTIONS (3)
  - ANGIOEDEMA [None]
  - RESPIRATORY FAILURE [None]
  - RESPIRATORY TRACT OEDEMA [None]
